FAERS Safety Report 16838760 (Version 1)
Quarter: 2019Q3

REPORT INFORMATION
  Report Type: Spontaneous
  Country: US (occurrence: US)
  Receive Date: 20190731
  Receipt Date: 20190731
  Transmission Date: 20191005
  Serious: No
  Sender: FDA-Public Use
  Company Number: None

PATIENT

DRUGS (2)
  1. CLINDAMYCIN HCL CLINDAMYCIN IN 5% DEXTROSE [Suspect]
     Active Substance: CLINDAMYCIN
     Route: 042
  2. LINEZOLID. [Suspect]
     Active Substance: LINEZOLID
     Route: 042

REACTIONS (4)
  - Wrong product stored [None]
  - Product appearance confusion [None]
  - Product label confusion [None]
  - Intercepted product dispensing error [None]
